FAERS Safety Report 15755891 (Version 1)
Quarter: 2018Q4

REPORT INFORMATION
  Report Type: Spontaneous
  Country: US (occurrence: US)
  Receive Date: 20181218
  Receipt Date: 20181218
  Transmission Date: 20190205
  Serious: Yes (Other)
  Sender: FDA-Public Use
  Company Number: None

PATIENT

DRUGS (5)
  1. INOTUZUMAB OZOGAMICIN [Suspect]
     Active Substance: INOTUZUMAB OZOGAMICIN
  2. CISPLATIN. [Suspect]
     Active Substance: CISPLATIN
  3. OXALIPLATIN OXALIPLATIN [Suspect]
     Active Substance: OXALIPLATIN
  4. CARBOPLATIN. [Suspect]
     Active Substance: CARBOPLATIN
  5. GEMTUZUMAB OZOGAMICIN [Suspect]
     Active Substance: GEMTUZUMAB OZOGAMICIN

REACTIONS (2)
  - Product appearance confusion [None]
  - Product name confusion [None]
